FAERS Safety Report 9898116 (Version 2)
Quarter: 2014Q1

REPORT INFORMATION
  Report Type: Spontaneous
  Country: US (occurrence: US)
  Receive Date: 20140214
  Receipt Date: 20140214
  Transmission Date: 20141002
  Serious: No
  Sender: FDA-Public Use
  Company Number: US-GILEAD-2011-0040793

PATIENT
  Age: 76 Year
  Sex: Female

DRUGS (4)
  1. LETAIRIS [Suspect]
     Indication: PULMONARY HYPERTENSION
     Route: 048
     Dates: start: 20110523, end: 20110609
  2. LETAIRIS [Suspect]
     Indication: PULMONARY FIBROSIS
  3. NIFEDIPINE [Concomitant]
  4. ZESTRIL [Concomitant]

REACTIONS (3)
  - Hypotension [Unknown]
  - Dyspnoea [Unknown]
  - Fluid retention [Unknown]
